FAERS Safety Report 20058542 (Version 1)
Quarter: 2021Q4

REPORT INFORMATION
  Report Type: Spontaneous
  Country: CN (occurrence: CN)
  Receive Date: 20211111
  Receipt Date: 20211111
  Transmission Date: 20220303
  Serious: Yes (Hospitalization)
  Sender: FDA-Public Use
  Company Number: CN-PFIZER INC-202101484281

PATIENT
  Age: 48 Year
  Sex: Male

DRUGS (4)
  1. ZYVOX [Suspect]
     Active Substance: LINEZOLID
     Indication: Tuberculosis of central nervous system
     Dosage: 0.6 G, 1X/DAY
     Route: 041
     Dates: start: 20210819, end: 20210923
  2. ZYVOX [Suspect]
     Active Substance: LINEZOLID
     Indication: Central nervous system infection
  3. LINEZOLID [Suspect]
     Active Substance: LINEZOLID
     Indication: Tuberculosis of central nervous system
     Dosage: 0.6 G, QN
     Route: 048
     Dates: start: 20210819, end: 20210825
  4. LINEZOLID [Suspect]
     Active Substance: LINEZOLID
     Indication: Central nervous system infection

REACTIONS (2)
  - Amylase increased [Recovering/Resolving]
  - Pancreatic enzymes increased [Recovering/Resolving]

NARRATIVE: CASE EVENT DATE: 20210819
